FAERS Safety Report 4901643-9 (Version None)
Quarter: 2006Q1

REPORT INFORMATION
  Report Type: 
  Country: None (occurrence: None)
  Receive Date: 20060206
  Receipt Date: 20050810
  Transmission Date: 20060701
  Serious: No
  Sender: FDA-Public Use
  Company Number: US-BRISTOL-MYERS SQUIBB COMPANY-13073440

PATIENT
  Age: 69 Year
  Sex: Male

DRUGS (2)
  1. TAXOL [Suspect]
     Indication: PROSTATE CANCER
     Route: 042
     Dates: start: 20050301
  2. RADIATION THERAPY [Suspect]
     Indication: PROSTATE CANCER

REACTIONS (2)
  - DIARRHOEA [None]
  - PRURITUS ANI [None]
